FAERS Safety Report 9248398 (Version 2)
Quarter: 2013Q2

REPORT INFORMATION
  Report Type: Spontaneous
  Country: JP (occurrence: JP)
  Receive Date: 20130423
  Receipt Date: 20130520
  Transmission Date: 20140414
  Serious: Yes (Hospitalization, Other)
  Sender: FDA-Public Use
  Company Number: JP-PFIZER INC-2013121565

PATIENT
  Age: 32 Year
  Sex: Male

DRUGS (3)
  1. IDAMYCIN [Suspect]
     Indication: ACUTE PROMYELOCYTIC LEUKAEMIA
     Dosage: UNK
     Dates: start: 20121011
  2. CYTARABINE [Suspect]
     Indication: ACUTE PROMYELOCYTIC LEUKAEMIA
     Dosage: UNK
     Dates: start: 20121011
  3. ALL-TRANS RETINOIC ACID [Concomitant]
     Indication: ACUTE PROMYELOCYTIC LEUKAEMIA
     Dosage: UNK
     Dates: start: 20121011

REACTIONS (1)
  - Stomatitis [Unknown]
